FAERS Safety Report 6904737-1 (Version None)
Quarter: 2010Q3

REPORT INFORMATION
  Report Type: 
  Country: None (occurrence: None)
  Receive Date: 20100804
  Receipt Date: 20100727
  Transmission Date: 20110219
  Serious: Yes (Hospitalization)
  Sender: FDA-Public Use
  Company Number: US-BIOGENIDEC-2010BI025898

PATIENT
  Sex: Female

DRUGS (1)
  1. AVONEX [Suspect]
     Indication: MULTIPLE SCLEROSIS
     Route: 030
     Dates: start: 20090522, end: 20100601

REACTIONS (5)
  - ANXIETY [None]
  - DEPRESSION [None]
  - HOT FLUSH [None]
  - IMMUNE SYSTEM DISORDER [None]
  - PNEUMONIA [None]
